FAERS Safety Report 9514556 (Version 3)
Quarter: 2013Q3

REPORT INFORMATION
  Report Type: Report from Study
  Country: BE (occurrence: BE)
  Receive Date: 20130911
  Receipt Date: 20130924
  Transmission Date: 20140515
  Serious: Yes (Life-Threatening, Hospitalization, Other)
  Sender: FDA-Public Use
  Company Number: BE-AMGEN-BELCT2013062668

PATIENT
  Age: 50 Year
  Sex: Female
  Weight: 65 kg

DRUGS (2)
  1. ETANERCEPT [Suspect]
     Indication: RHEUMATOID ARTHRITIS
     Dosage: 25 MG, 2 TIMES/WK
     Route: 058
     Dates: start: 200405, end: 20070205
  2. METHYLPREDNISOLONE [Concomitant]
     Dosage: UNK
     Route: 048

REACTIONS (3)
  - Hodgkin^s disease nodular sclerosis [Recovered/Resolved]
  - Vasculitis [Unknown]
  - Visceral leishmaniasis [Unknown]
